FAERS Safety Report 14653163 (Version 1)
Quarter: 2018Q1

REPORT INFORMATION
  Report Type: Spontaneous
  Country: US (occurrence: US)
  Receive Date: 20180319
  Receipt Date: 20180319
  Transmission Date: 20180509
  Serious: Yes (Other)
  Sender: FDA-Public Use
  Company Number: US-CIPLA LTD.-2013US00779

PATIENT

DRUGS (5)
  1. PACLITAXEL. [Suspect]
     Active Substance: PACLITAXEL
     Dosage: 135 MG/M2
     Route: 042
  2. RADIOTHERAPY [Suspect]
     Active Substance: RADIATION THERAPY
     Indication: ENDOMETRIAL CANCER
     Dosage: 3 FRACTIONS OF 700 CGY TO A DEPTH OF 0.5 CM FOR A TOTAL DOSE OF 2100 CGY + HDR VAGINAL BRACHYTHERAPY
     Route: 065
  3. CARBOPLATIN. [Suspect]
     Active Substance: CARBOPLATIN
     Dosage: AUC 5
     Route: 042
  4. CARBOPLATIN. [Suspect]
     Active Substance: CARBOPLATIN
     Indication: ENDOMETRIAL CANCER
     Dosage: AUC = 6 EVERY 21 DAYS
     Route: 042
  5. PACLITAXEL. [Suspect]
     Active Substance: PACLITAXEL
     Indication: ENDOMETRIAL CANCER
     Dosage: 175 MG/M2, UNK
     Route: 042

REACTIONS (1)
  - Febrile neutropenia [Unknown]
